FAERS Safety Report 4695746-4 (Version None)
Quarter: 2005Q2

REPORT INFORMATION
  Report Type: 
  Country: None (occurrence: None)
  Receive Date: 20050616
  Receipt Date: 20050616
  Transmission Date: 20051028
  Serious: Yes (Disabling)
  Sender: FDA-Public Use
  Company Number: None

PATIENT
  Age: 69 Year
  Sex: Female
  Weight: 90.7194 kg

DRUGS (2)
  1. LEVAQUIN [Suspect]
     Dosage: DAILY
     Dates: start: 20020501
  2. LEVAQUIN [Suspect]
     Dosage: DAILY
     Dates: start: 20020510

REACTIONS (1)
  - TENDON RUPTURE [None]
